FAERS Safety Report 9254041 (Version 1)
Quarter: 2013Q1

REPORT INFORMATION
  Report Type: Spontaneous
  Country: US (occurrence: None)
  Receive Date: 20121203
  Receipt Date: 20121203
  Transmission Date: 20140127
  Serious: Yes (Hospitalization, Other)
  Sender: FDA-Public Use
  Company Number: 2012SP003704

PATIENT
  Age: 33 Year
  Sex: Female
  Weight: 97.5 kg

DRUGS (2)
  1. NUVARING [Suspect]
     Indication: CONTRACEPTION
     Route: 067
     Dates: start: 200311, end: 201101
  2. NUVARING [Suspect]
     Indication: MENSTRUAL CYCLE MANAGEMENT
     Route: 067
     Dates: start: 200311, end: 201101

REACTIONS (13)
  - Pulmonary embolism [None]
  - Mitral valve prolapse [None]
  - Supraventricular tachycardia [None]
  - Hypertension [None]
  - Migraine [None]
  - Tooth extraction [None]
  - Headache [None]
  - Menorrhagia [None]
  - Constipation [None]
  - Viral rhinitis [None]
  - Coagulopathy [None]
  - Drug hypersensitivity [None]
  - Anxiety [None]
